FAERS Safety Report 16177555 (Version 1)
Quarter: 2019Q2

REPORT INFORMATION
  Report Type: Spontaneous
  Country: US (occurrence: US)
  Receive Date: 20190306
  Receipt Date: 20190306
  Transmission Date: 20190711
  Serious: No
  Sender: FDA-Public Use
  Company Number: None

PATIENT
  Age: 61 Year
  Sex: Male
  Weight: 79.02 kg

DRUGS (1)
  1. HEPARIN [Suspect]
     Active Substance: HEPARIN SODIUM
     Indication: DEEP VEIN THROMBOSIS
     Dosage: 5000 UNITS; TID SQ?
     Route: 058
     Dates: start: 20180829, end: 20180909

REACTIONS (1)
  - Heparin-induced thrombocytopenia [None]

NARRATIVE: CASE EVENT DATE: 20180914
